FAERS Safety Report 5510790-2 (Version None)
Quarter: 2007Q4

REPORT INFORMATION
  Report Type: 
  Country: None (occurrence: None)
  Receive Date: 20071108
  Receipt Date: 20071019
  Transmission Date: 20080405
  Serious: Yes (Life-Threatening, Hospitalization, Disabling)
  Sender: FDA-Public Use
  Company Number: CN-GENENTECH-250576

PATIENT
  Sex: Female

DRUGS (6)
  1. BEVACIZUMAB [Suspect]
     Indication: COLORECTAL CANCER METASTATIC
     Dosage: 280 MG, QOW
     Route: 042
     Dates: start: 20070914
  2. IRINOTECAN HCL [Suspect]
     Indication: COLORECTAL CANCER METASTATIC
     Dosage: 200 MG, 1/WEEK
     Route: 042
     Dates: start: 20070914
  3. IRINOTECAN HCL [Suspect]
     Dosage: 160 MG, 1/WEEK
     Dates: start: 20070929
  4. FLUOROURACIL [Suspect]
     Indication: COLORECTAL CANCER METASTATIC
     Dosage: 820 MG, 1/WEEK
     Dates: start: 20070914
  5. FLUOROURACIL [Suspect]
     Dosage: 650 MG, 1/WEEK
  6. LEUCOVORIN [Suspect]
     Indication: COLORECTAL CANCER METASTATIC
     Dosage: 33 MG, 1/WEEK
     Dates: start: 20070914, end: 20071007

REACTIONS (1)
  - DIARRHOEA HAEMORRHAGIC [None]
